FAERS Safety Report 20929576 (Version 2)
Quarter: 2022Q3

REPORT INFORMATION
  Report Type: Spontaneous
  Country: US (occurrence: US)
  Receive Date: 20220608
  Receipt Date: 20220704
  Transmission Date: 20221026
  Serious: Yes (Other)
  Sender: FDA-Public Use
  Company Number: US-BEH-2022146165

PATIENT
  Age: 4 Year
  Sex: Male
  Weight: 18 kg

DRUGS (5)
  1. HUMAN IMMUNOGLOBULIN G [Interacting]
     Active Substance: HUMAN IMMUNOGLOBULIN G
     Indication: Viral myositis
     Route: 042
  2. ECULIZUMAB [Interacting]
     Active Substance: ECULIZUMAB
     Indication: Atypical haemolytic uraemic syndrome
     Dosage: 600 MILLIGRAM, TOTAL ON HOPSITAL DAY 4
     Route: 065
  3. ECULIZUMAB [Interacting]
     Active Substance: ECULIZUMAB
     Dosage: 300 MILLIGRAM, TOTAL
     Route: 065
  4. ECULIZUMAB [Interacting]
     Active Substance: ECULIZUMAB
     Dosage: 300 MILLIGRAM, TOTAL
     Route: 065
  5. ECULIZUMAB [Interacting]
     Active Substance: ECULIZUMAB
     Dosage: 600 MILLIGRAM, WEEKLY
     Route: 065

REACTIONS (4)
  - Drug clearance increased [Unknown]
  - Drug interaction [Unknown]
  - No adverse event [Unknown]
  - Off label use [Unknown]
